FAERS Safety Report 7109906-6 (Version None)
Quarter: 2010Q4

REPORT INFORMATION
  Report Type: 
  Country: None (occurrence: None)
  Receive Date: 20101118
  Receipt Date: 20101116
  Transmission Date: 20110411
  Serious: Yes (Hospitalization)
  Sender: FDA-Public Use
  Company Number: AT-BRISTOL-MYERS SQUIBB COMPANY-14348494

PATIENT
  Age: 41 Year
  Sex: Female
  Weight: 50 kg

DRUGS (5)
  1. ABILIFY [Suspect]
     Dosage: TAKEN DURING BREASTFEEDING:4 WEEKS
     Route: 048
  2. TRAZODONE HCL [Concomitant]
     Indication: DEPRESSION
     Route: 048
  3. SERTRALINE HYDROCHLORIDE [Concomitant]
     Indication: DEPRESSION
     Route: 048
  4. ARIPIPRAZOLE [Concomitant]
     Route: 048
  5. QUETIAPINE [Concomitant]
     Route: 048

REACTIONS (4)
  - HYDRONEPHROSIS [None]
  - NORMAL NEWBORN [None]
  - PREGNANCY [None]
  - UTERINE CONTRACTIONS DURING PREGNANCY [None]
